FAERS Safety Report 19841519 (Version 1)
Quarter: 2021Q3

REPORT INFORMATION
  Report Type: Spontaneous
  Country: US (occurrence: US)
  Receive Date: 20210915
  Receipt Date: 20210915
  Transmission Date: 20211014
  Serious: No
  Sender: FDA-Public Use
  Company Number: US-BAYER-2021-209415

PATIENT
  Age: 11 Year
  Sex: Male

DRUGS (3)
  1. DOCETAXEL. [Concomitant]
     Active Substance: DOCETAXEL
     Dosage: 11 CYCLES
  2. GEMCITABINE. [Concomitant]
     Active Substance: GEMCITABINE
     Dosage: 11 CYCLES
  3. SORAFENIB (RAF KINASE INHIBITOR) [Suspect]
     Active Substance: SORAFENIB
     Indication: OSTEOSARCOMA
     Dosage: UNK

REACTIONS (3)
  - Product use issue [None]
  - Off label use [None]
  - Adverse drug reaction [None]
